FAERS Safety Report 8060511-7 (Version None)
Quarter: 2012Q1

REPORT INFORMATION
  Report Type: 
  Country: None (occurrence: None)
  Receive Date: 20120120
  Receipt Date: 20120112
  Transmission Date: 20120608
  Serious: Yes (Hospitalization)
  Sender: FDA-Public Use
  Company Number: US-GENZYME-POMP-1001960

PATIENT
  Sex: Male
  Weight: 96.5 kg

DRUGS (2)
  1. SOLU-MEDROL [Concomitant]
     Indication: PREMEDICATION
     Dosage: 60 MG, QOW
     Route: 042
  2. LUMIZYME [Suspect]
     Indication: GLYCOGEN STORAGE DISEASE TYPE II
     Dosage: 19.6 MG/KG, QOW
     Route: 042

REACTIONS (1)
  - IMPAIRED GASTRIC EMPTYING [None]
